FAERS Safety Report 26043634 (Version 1)
Quarter: 2025Q4

REPORT INFORMATION
  Report Type: Spontaneous
  Country: US (occurrence: US)
  Receive Date: 20251113
  Receipt Date: 20251113
  Transmission Date: 20260117
  Serious: No
  Sender: SANOFI AVENTIS
  Company Number: US-SA-2025SA336902

PATIENT
  Age: 54 Year
  Sex: Female
  Weight: 62.95 kg

DRUGS (16)
  1. DUPIXENT [Suspect]
     Active Substance: DUPILUMAB
     Indication: Dermatitis atopic
     Dosage: UNK  1X
     Route: 058
     Dates: start: 20251029, end: 20251029
  2. TESTOSTERONE [Concomitant]
     Active Substance: TESTOSTERONE
  3. PROGESTERONE [Concomitant]
     Active Substance: PROGESTERONE
  4. NP THYROID [Concomitant]
     Active Substance: LEVOTHYROXINE\LIOTHYRONINE
  5. ENTRESTO [Concomitant]
     Active Substance: SACUBITRIL\VALSARTAN
  6. OZEMPIC [Concomitant]
     Active Substance: SEMAGLUTIDE
  7. SPIRONOLACTONE [Concomitant]
     Active Substance: SPIRONOLACTONE
  8. METHOTREXATE [Concomitant]
     Active Substance: METHOTREXATE
  9. CLOBETASOL [Concomitant]
     Active Substance: CLOBETASOL
  10. TYLENOL [Concomitant]
     Active Substance: ACETAMINOPHEN
  11. FISH OIL [Concomitant]
     Active Substance: FISH OIL
  12. VITAMIN D3 [Concomitant]
     Active Substance: CHOLECALCIFEROL
  13. CREATINE [Concomitant]
     Active Substance: CREATINE
  14. COLLAGENASE [Concomitant]
     Active Substance: COLLAGENASE CLOSTRIDIUM HISTOLYTICUM
  15. VITAMINS NOS [Concomitant]
     Active Substance: VITAMINS
  16. VICKS DAYQUIL/NYQUIL [Concomitant]

REACTIONS (2)
  - Nasopharyngitis [Unknown]
  - Injection site pain [Unknown]

NARRATIVE: CASE EVENT DATE: 20250101
